FAERS Safety Report 10585029 (Version 2)
Quarter: 2015Q2

REPORT INFORMATION
  Report Type: Spontaneous
  Country: FR (occurrence: FR)
  Receive Date: 20141114
  Receipt Date: 20150611
  Transmission Date: 20150821
  Serious: Yes (Life-Threatening)
  Sender: FDA-Public Use
  Company Number: FR-009507513-1411FRA004514

PATIENT
  Age: 63 Year
  Sex: Female

DRUGS (3)
  1. ESMERON [Suspect]
     Active Substance: ROCURONIUM BROMIDE
     Indication: GENERAL ANAESTHESIA
     Dosage: 40 MG, QD
     Route: 042
     Dates: start: 20141028, end: 20141028
  2. SUFENTA [Suspect]
     Active Substance: SUFENTANIL CITRATE
     Indication: GENERAL ANAESTHESIA
     Dosage: TARGET CONTROLLED INTRAVENOUS ANESTHESIA
     Route: 042
     Dates: start: 20141028, end: 20141028
  3. PROPOFOL. [Suspect]
     Active Substance: PROPOFOL
     Indication: GENERAL ANAESTHESIA
     Dosage: TARGET CONTROLLED INTRAVENOUS ANESTHESIA
     Route: 042
     Dates: start: 20141028, end: 20141028

REACTIONS (3)
  - Oxygen saturation decreased [Recovered/Resolved]
  - Respiratory distress [Recovered/Resolved]
  - Rash erythematous [Recovered/Resolved]

NARRATIVE: CASE EVENT DATE: 20141028
